FAERS Safety Report 5490110-2 (Version None)
Quarter: 2007Q4

REPORT INFORMATION
  Report Type: 
  Country: None (occurrence: None)
  Receive Date: 20071018
  Receipt Date: 20071017
  Transmission Date: 20080405
  Serious: No
  Sender: FDA-Public Use
  Company Number: US-BOEHRINGER INGELHEIM PHARMACEUTICALS, INC.-2007-BP-19860BP

PATIENT
  Sex: Male

DRUGS (10)
  1. MIRAPEX [Suspect]
     Indication: RESTLESS LEGS SYNDROME
     Route: 048
     Dates: start: 19970101
  2. GABAPENTIN [Concomitant]
     Indication: RESTLESS LEGS SYNDROME
  3. PAXIL [Concomitant]
  4. LOVASTATIN [Concomitant]
     Indication: BLOOD CHOLESTEROL
  5. LISINOPRIL [Concomitant]
     Indication: HYPERTENSION
  6. TEMAZEPAM [Concomitant]
     Indication: SLEEP DISORDER
  7. ATENOLOL [Concomitant]
     Indication: HYPERTENSION
  8. TERAZOSIN HCL [Concomitant]
     Indication: SLEEP APNOEA SYNDROME
  9. TERAZOSIN HCL [Concomitant]
     Indication: PROSTATIC DISORDER
  10. HYDROCHLOROTHIAZIDE [Concomitant]
     Indication: HYPERTENSION

REACTIONS (6)
  - ABNORMAL SLEEP-RELATED EVENT [None]
  - CONTUSION [None]
  - FALL [None]
  - HEAD INJURY [None]
  - ROTATOR CUFF SYNDROME [None]
  - SOMNAMBULISM [None]
